FAERS Safety Report 6336950-9 (Version None)
Quarter: 2009Q3

REPORT INFORMATION
  Report Type: 
  Country: None (occurrence: None)
  Receive Date: 20090901
  Receipt Date: 20090825
  Transmission Date: 20100115
  Serious: Yes (Other)
  Sender: FDA-Public Use
  Company Number: JP-BAXTER-2009BH010055

PATIENT
  Age: 73 Year
  Sex: Male

DRUGS (13)
  1. ENDOXAN BAXTER [Suspect]
     Indication: INTERSTITIAL LUNG DISEASE
     Route: 041
     Dates: start: 20090522, end: 20090522
  2. ENDOXAN BAXTER [Suspect]
     Indication: OFF LABEL USE
     Route: 041
     Dates: start: 20090522, end: 20090522
  3. ENDOXAN BAXTER [Suspect]
     Route: 041
     Dates: start: 20090527, end: 20090527
  4. ENDOXAN BAXTER [Suspect]
     Route: 041
     Dates: start: 20090527, end: 20090527
  5. ENDOXAN BAXTER [Suspect]
     Route: 041
     Dates: start: 20090603, end: 20090603
  6. ENDOXAN BAXTER [Suspect]
     Route: 041
     Dates: start: 20090603, end: 20090603
  7. OMEPRAL [Suspect]
     Indication: DRUG USE FOR UNKNOWN INDICATION
     Route: 042
     Dates: start: 20090511, end: 20090603
  8. PROPOFOL [Suspect]
     Indication: DRUG USE FOR UNKNOWN INDICATION
     Route: 041
     Dates: start: 20090508, end: 20090620
  9. BISOLVON [Suspect]
     Indication: DRUG USE FOR UNKNOWN INDICATION
     Route: 042
     Dates: start: 20090511, end: 20090605
  10. FULCALIQ 3 [Suspect]
     Indication: DRUG USE FOR UNKNOWN INDICATION
     Route: 042
     Dates: start: 20090524, end: 20090620
  11. METHYLPREDNISOLONE [Suspect]
     Indication: DRUG USE FOR UNKNOWN INDICATION
     Route: 065
     Dates: start: 20090507, end: 20090509
  12. METHYLPREDNISOLONE [Suspect]
     Route: 065
     Dates: start: 20090514, end: 20090516
  13. DOPAMINE HYDROCHLORIDE [Concomitant]
     Indication: DRUG USE FOR UNKNOWN INDICATION
     Route: 041
     Dates: start: 20090508, end: 20090620

REACTIONS (2)
  - HEPATIC FUNCTION ABNORMAL [None]
  - STAPHYLOCOCCAL INFECTION [None]
